FAERS Safety Report 26045886 (Version 2)
Quarter: 2025Q4

REPORT INFORMATION
  Report Type: Spontaneous
  Country: CN (occurrence: CN)
  Receive Date: 20251114
  Receipt Date: 20251230
  Transmission Date: 20260119
  Serious: Yes (Other)
  Sender: RANBAXY
  Company Number: CN-SUN PHARMACEUTICAL INDUSTRIES INC-2025R1-535351

PATIENT
  Age: 40 Year
  Sex: Female

DRUGS (3)
  1. ODOMZO [Suspect]
     Active Substance: SONIDEGIB
     Indication: Basal cell carcinoma
     Dosage: 200 MILLIGRAM, QD
     Route: 065
     Dates: start: 20250409, end: 202507
  2. ODOMZO [Suspect]
     Active Substance: SONIDEGIB
     Dosage: 200 MILLIGRAM, QD
     Route: 065
     Dates: start: 202507, end: 20250719
  3. ODOMZO [Suspect]
     Active Substance: SONIDEGIB
     Dosage: 200 MILLIGRAM, QD
     Route: 065
     Dates: start: 20250720

REACTIONS (7)
  - Asthenia [Recovering/Resolving]
  - Tetany [Recovering/Resolving]
  - Ovarian cyst [Unknown]
  - Adnexa uteri cyst [Unknown]
  - Abdominal discomfort [Recovered/Resolved]
  - Amenorrhoea [Not Recovered/Not Resolved]
  - Muscle spasms [Recovering/Resolving]

NARRATIVE: CASE EVENT DATE: 20250501
